APPROVED DRUG PRODUCT: DAUNORUBICIN HYDROCHLORIDE
Active Ingredient: DAUNORUBICIN HYDROCHLORIDE
Strength: EQ 5MG BASE/ML
Dosage Form/Route: INJECTABLE;INJECTION
Application: A065035 | Product #001 | TE Code: AP
Applicant: MEITHEAL PHARMACEUTICALS INC
Approved: Jan 24, 2000 | RLD: No | RS: No | Type: RX